FAERS Safety Report 5649907-8 (Version None)
Quarter: 2008Q1

REPORT INFORMATION
  Report Type: 
  Country: None (occurrence: None)
  Receive Date: 20080226
  Receipt Date: 20080214
  Transmission Date: 20080703
  Serious: Yes (Hospitalization)
  Sender: FDA-Public Use
  Company Number: WSDF-00707

PATIENT
  Age: 43 Year
  Sex: Female

DRUGS (3)
  1. WINRHO SDF [Suspect]
     Indication: IDIOPATHIC THROMBOCYTOPENIC PURPURA
     Dosage: 75 UG/KG ONCE IV
     Route: 042
     Dates: start: 20080108, end: 20080108
  2. DECADRON [Concomitant]
  3. BENADRYL [Concomitant]

REACTIONS (11)
  - ACUTE CORONARY SYNDROME [None]
  - ANGINA PECTORIS [None]
  - CHILLS [None]
  - CORONARY ARTERY DISEASE [None]
  - DYSPNOEA [None]
  - FEELING JITTERY [None]
  - HEADACHE [None]
  - MYOCARDIAL INFARCTION [None]
  - PAIN IN JAW [None]
  - PLATELET COUNT INCREASED [None]
  - TREMOR [None]
